FAERS Safety Report 15877790 (Version 1)
Quarter: 2019Q1

REPORT INFORMATION
  Report Type: Spontaneous
  Country: IN (occurrence: IN)
  Receive Date: 20190128
  Receipt Date: 20190128
  Transmission Date: 20190417
  Serious: Yes (Other)
  Sender: FDA-Public Use
  Company Number: IN-UNICHEM PHARMACEUTICALS (USA) INC-UCM201809-000220

PATIENT
  Age: 36 Year
  Sex: Female

DRUGS (3)
  1. TOPIRAMATE. [Suspect]
     Active Substance: TOPIRAMATE
  2. TOPIRAMATE. [Suspect]
     Active Substance: TOPIRAMATE
  3. ELTROXIN [Concomitant]
     Active Substance: LEVOTHYROXINE

REACTIONS (7)
  - Cataract [Recovered/Resolved]
  - Uveitis [Recovered/Resolved]
  - Conjunctival hyperaemia [Recovered/Resolved]
  - Angle closure glaucoma [Recovered/Resolved]
  - Conjunctival haemorrhage [Recovered/Resolved]
  - Retinal detachment [Recovered/Resolved]
  - Iris adhesions [Recovered/Resolved]
